FAERS Safety Report 7469173-0 (Version None)
Quarter: 2011Q2

REPORT INFORMATION
  Report Type: 
  Country: None (occurrence: None)
  Receive Date: 20110510
  Receipt Date: 20110428
  Transmission Date: 20111010
  Serious: Yes (Other)
  Sender: FDA-Public Use
  Company Number: US-BAYER-2011-036745

PATIENT
  Age: 35 Year
  Sex: Female

DRUGS (2)
  1. MIRENA [Suspect]
     Indication: CONTRACEPTION
     Dosage: 20 ?G, CONT
     Route: 015
     Dates: start: 20090401, end: 20110420
  2. MIRENA [Suspect]
     Indication: MENORRHAGIA

REACTIONS (11)
  - DEVICE DISLOCATION [None]
  - POST PROCEDURAL HAEMORRHAGE [None]
  - PROCEDURAL DIZZINESS [None]
  - DEVICE EXPULSION [None]
  - DEHYDRATION [None]
  - PROCEDURAL PAIN [None]
  - SPEECH DISORDER [None]
  - LOSS OF CONSCIOUSNESS [None]
  - ABDOMINAL PAIN LOWER [None]
  - SHOCK HAEMORRHAGIC [None]
  - GENITAL HAEMORRHAGE [None]
